FAERS Safety Report 5915967-X (Version None)
Quarter: 2008Q4

REPORT INFORMATION
  Report Type: 
  Country: None (occurrence: None)
  Receive Date: 20081013
  Receipt Date: 20081003
  Transmission Date: 20090506
  Serious: Yes (Hospitalization)
  Sender: FDA-Public Use
  Company Number: BR-BAYER-200818988LA

PATIENT
  Age: 52 Year
  Sex: Female

DRUGS (7)
  1. BETAFERON [Suspect]
     Indication: MULTIPLE SCLEROSIS
     Route: 058
     Dates: start: 20040401
  2. METOTREXATO [Concomitant]
     Indication: DRUG USE FOR UNKNOWN INDICATION
     Dosage: UNIT DOSE: 2.5 MG
     Route: 048
     Dates: start: 20071001, end: 20080801
  3. METOTREXATO [Concomitant]
     Dosage: UNIT DOSE: 2.5 MG
     Route: 048
     Dates: start: 20080801
  4. BACLOFEN [Concomitant]
     Indication: MUSCLE DISORDER
     Dosage: UNIT DOSE: 10 MG
     Route: 048
     Dates: start: 20071001, end: 20080801
  5. BACLOFEN [Concomitant]
     Dosage: UNIT DOSE: 10 MG
     Route: 048
     Dates: start: 20070801
  6. BOTOX [Concomitant]
     Indication: MUSCLE DISORDER
     Route: 065
     Dates: start: 20080801, end: 20080801
  7. TEGRETOL [Concomitant]
     Indication: MUSCLE RIGIDITY
     Dosage: TOTAL DAILY DOSE: 200 MG  UNIT DOSE: 200 MG
     Route: 048
     Dates: start: 19880101

REACTIONS (4)
  - BACK PAIN [None]
  - GALLBLADDER DISORDER [None]
  - NAUSEA [None]
  - VOMITING [None]
